FAERS Safety Report 25720556 (Version 1)
Quarter: 2025Q3

REPORT INFORMATION
  Report Type: Report from Study
  Country: GB (occurrence: GB)
  Receive Date: 20250825
  Receipt Date: 20250825
  Transmission Date: 20251020
  Serious: Yes (Hospitalization)
  Sender: SAMSUNG BIOEPIS
  Company Number: GB-SAMSUNG BIOEPIS-SB-2025-28398

PATIENT
  Age: 78 Year
  Sex: Male

DRUGS (1)
  1. PYZCHIVA [Suspect]
     Active Substance: USTEKINUMAB-TTWE
     Indication: Psoriasis
     Route: 058

REACTIONS (2)
  - Cardiac failure [Unknown]
  - Pruritus [Unknown]
